FAERS Safety Report 5508552-5 (Version None)
Quarter: 2007Q4

REPORT INFORMATION
  Report Type: 
  Country: None (occurrence: None)
  Receive Date: 20071031
  Receipt Date: 20070714
  Transmission Date: 20080405
  Serious: No
  Sender: FDA-Public Use
  Company Number: 2007PV033128

PATIENT
  Age: 46 Year
  Sex: Female

DRUGS (7)
  1. SYMLIN [Suspect]
     Indication: TYPE 2 DIABETES MELLITUS
     Dosage: 120 MCG;TID;SC ; 60 MCG;TID;SC
     Route: 058
     Dates: start: 20050601, end: 20050601
  2. SYMLIN [Suspect]
     Indication: TYPE 2 DIABETES MELLITUS
     Dosage: 120 MCG;TID;SC ; 60 MCG;TID;SC
     Route: 058
     Dates: start: 20050601, end: 20070101
  3. NOVOLOG [Concomitant]
  4. LANTUS [Concomitant]
  5. LACTOBACILLUS [Concomitant]
  6. ACIDOPHILUS [Concomitant]
  7. ETODOLAC [Concomitant]

REACTIONS (5)
  - BLOOD GLUCOSE DECREASED [None]
  - CONFUSIONAL STATE [None]
  - DIARRHOEA [None]
  - EAR INFECTION STAPHYLOCOCCAL [None]
  - LIGAMENT LAXITY [None]
